FAERS Safety Report 7459651-2 (Version None)
Quarter: 2011Q2

REPORT INFORMATION
  Report Type: 
  Country: None (occurrence: None)
  Receive Date: 20110505
  Receipt Date: 20110428
  Transmission Date: 20111010
  Serious: Yes (Other)
  Sender: FDA-Public Use
  Company Number: PHHY2011NG37186

PATIENT

DRUGS (1)
  1. PILOCARPINE [Suspect]
     Indication: INTRAOCULAR PRESSURE TEST
     Dosage: UNK UKN, UNK

REACTIONS (4)
  - EYE SWELLING [None]
  - OCULAR HYPERAEMIA [None]
  - EYE PAIN [None]
  - LACRIMATION INCREASED [None]
